FAERS Safety Report 7657571-1 (Version None)
Quarter: 2011Q3

REPORT INFORMATION
  Report Type: 
  Country: None (occurrence: None)
  Receive Date: 20110804
  Receipt Date: 20110728
  Transmission Date: 20111222
  Serious: Yes (Other)
  Sender: FDA-Public Use
  Company Number: US-AMGEN-USASP2011033852

PATIENT
  Age: 48 Year
  Sex: Female

DRUGS (4)
  1. VITAMIN D [Concomitant]
  2. PROLIA [Suspect]
     Indication: OSTEOPENIA
     Dosage: 60 MG, UNK
     Dates: start: 20110608
  3. OTHER MINERAL SUPPLEMENTS [Concomitant]
  4. PREMARIN [Concomitant]

REACTIONS (7)
  - ARTHRALGIA [None]
  - BACK PAIN [None]
  - PAIN IN EXTREMITY [None]
  - MUSCULOSKELETAL PAIN [None]
  - MUSCLE SPASMS [None]
  - HYPOAESTHESIA [None]
  - PARAESTHESIA [None]
